FAERS Safety Report 25131408 (Version 1)
Quarter: 2025Q1

REPORT INFORMATION
  Report Type: Spontaneous
  Country: US (occurrence: US)
  Receive Date: 20250327
  Receipt Date: 20250327
  Transmission Date: 20250408
  Serious: Yes (Life-Threatening, Hospitalization)
  Sender: MYLAN
  Company Number: US-MYLANLABS-2025M1026036

PATIENT
  Age: 36 Year
  Sex: Female

DRUGS (20)
  1. DIAZEPAM [Suspect]
     Active Substance: DIAZEPAM
     Indication: Status epilepticus
  2. LEVETIRACETAM [Suspect]
     Active Substance: LEVETIRACETAM
     Indication: Status epilepticus
  3. KETAMINE [Suspect]
     Active Substance: KETAMINE
     Indication: Major depression
  4. KETAMINE [Suspect]
     Active Substance: KETAMINE
  5. ATOMOXETINE [Suspect]
     Active Substance: ATOMOXETINE
     Indication: Major depression
  6. MIDAZOLAM [Suspect]
     Active Substance: MIDAZOLAM
     Indication: Status epilepticus
  7. MIDAZOLAM [Suspect]
     Active Substance: MIDAZOLAM
  8. MIDAZOLAM [Suspect]
     Active Substance: MIDAZOLAM
     Dosage: 10 MILLIGRAM, QH; IV DRIPS
  9. PROPOFOL [Suspect]
     Active Substance: PROPOFOL
     Indication: Status epilepticus
  10. PROPOFOL [Suspect]
     Active Substance: PROPOFOL
  11. PROPOFOL [Suspect]
     Active Substance: PROPOFOL
     Dosage: 50 MICROGRAM/KILOGRAM, QMINUTE, IV DRIPS
  12. LORAZEPAM [Suspect]
     Active Substance: LORAZEPAM
     Indication: Status epilepticus
  13. GABAPENTIN [Concomitant]
     Active Substance: GABAPENTIN
     Indication: Major depression
     Dosage: 1200 MILLIGRAM, BID
  14. GABAPENTIN [Concomitant]
     Active Substance: GABAPENTIN
  15. METHOHEXITAL [Concomitant]
     Active Substance: METHOHEXITAL
     Indication: Induction of anaesthesia
  16. SUCCINYLCHOLINE [Concomitant]
     Active Substance: SUCCINYLCHOLINE
     Indication: Induction of anaesthesia
  17. CLOMIPRAMINE [Interacting]
     Active Substance: CLOMIPRAMINE
     Indication: Major depression
     Dosage: 150 MILLIGRAM, QD
  18. LIDOCAINE [Interacting]
     Active Substance: LIDOCAINE
     Indication: Induction of anaesthesia
  19. LACOSAMIDE [Concomitant]
     Active Substance: LACOSAMIDE
     Indication: Seizure prophylaxis
     Dosage: 100 MILLIGRAM, BID
  20. LITHIUM [Concomitant]
     Active Substance: LITHIUM
     Indication: Suicidal ideation

REACTIONS (1)
  - Drug ineffective [Unknown]
